FAERS Safety Report 10094243 (Version 2)
Quarter: 2014Q2

REPORT INFORMATION
  Report Type: Spontaneous
  Country: AU (occurrence: AU)
  Receive Date: 20140422
  Receipt Date: 20140611
  Transmission Date: 20141212
  Serious: Yes (Disabling, Other)
  Sender: FDA-Public Use
  Company Number: AU-ROCHE-1384943

PATIENT
  Age: 63 Year
  Sex: Male

DRUGS (6)
  1. PEGASYS [Suspect]
     Indication: HEPATITIS C
     Route: 058
     Dates: start: 20130529
  2. RIBAVIRIN [Suspect]
     Indication: HEPATITIS C
     Route: 065
  3. TELAPREVIR [Suspect]
     Indication: HEPATITIS C
     Route: 065
     Dates: start: 20130529
  4. AVANZA [Concomitant]
     Indication: DEPRESSION
     Route: 065
  5. PANADEINE FORTE [Concomitant]
  6. NORSPAN (AUSTRALIA) [Concomitant]

REACTIONS (3)
  - VIIth nerve paralysis [Not Recovered/Not Resolved]
  - VIIth nerve paralysis [Recovered/Resolved]
  - Therapeutic product ineffective [Unknown]
